FAERS Safety Report 25919213 (Version 2)
Quarter: 2025Q4

REPORT INFORMATION
  Report Type: Spontaneous
  Country: GB (occurrence: GB)
  Receive Date: 20251014
  Receipt Date: 20251016
  Transmission Date: 20260118
  Serious: Yes (Other)
  Sender: PFIZER
  Company Number: None

PATIENT
  Age: 19 Year
  Sex: Female
  Weight: 51 kg

DRUGS (1)
  1. DEPO-PROVERA [Suspect]
     Active Substance: MEDROXYPROGESTERONE ACETATE
     Indication: Contraception
     Dosage: 150MG ONE DAY EVERY 12 WEEKS APART

REACTIONS (9)
  - Mood swings [Unknown]
  - Myalgia [Recovering/Resolving]
  - Irritability [Unknown]
  - Nausea [Recovering/Resolving]
  - Abdominal pain upper [Unknown]
  - Dizziness [Recovered/Resolved]
  - Somnolence [Recovering/Resolving]
  - Hot flush [Recovered/Resolved]
  - Injection site pain [Recovering/Resolving]
